FAERS Safety Report 8411194 (Version 5)
Quarter: 2012Q4

REPORT INFORMATION
  Report Type: Report from Study
  Country: JP (occurrence: JP)
  Receive Date: 20120217
  Receipt Date: 20121002
  Transmission Date: 20130627
  Serious: Yes (Other)
  Sender: FDA-Public Use
  Company Number: JP-JNJFOC-20120206290

PATIENT
  Age: 61 Year
  Sex: Male
  Weight: 80 kg

DRUGS (10)
  1. STELARA [Suspect]
     Indication: PSORIASIS
     Route: 058
     Dates: start: 20120615
  2. STELARA [Suspect]
     Indication: PSORIASIS
     Route: 058
     Dates: start: 20120518
  3. STELARA [Suspect]
     Indication: PSORIASIS
     Route: 058
     Dates: start: 20111118
  4. STELARA [Suspect]
     Indication: PSORIASIS
     Route: 058
     Dates: start: 20110811
  5. STELARA [Suspect]
     Indication: PSORIASIS
     Route: 058
     Dates: start: 20110715
  6. LIPITOR [Concomitant]
     Route: 048
     Dates: start: 2005
  7. URINORM [Concomitant]
     Route: 048
     Dates: start: 2005
  8. POTASSIUM CITRATE W/SODIUM CITRATE [Concomitant]
     Route: 048
     Dates: start: 2005
  9. LIPIDIL [Concomitant]
     Dates: start: 2008
  10. JANUVIA [Concomitant]
     Dates: start: 201103

REACTIONS (1)
  - Gamma-glutamyltransferase increased [Recovered/Resolved]
